FAERS Safety Report 11364912 (Version 2)
Quarter: 2015Q3

REPORT INFORMATION
  Report Type: Spontaneous
  Country: US (occurrence: US)
  Receive Date: 20150811
  Receipt Date: 20150907
  Transmission Date: 20151125
  Serious: No
  Sender: FDA-Public Use
  Company Number: US-ASTRAZENECA-2015SE74743

PATIENT
  Age: 62 Year
  Sex: Female

DRUGS (3)
  1. CRESTOR [Suspect]
     Active Substance: ROSUVASTATIN CALCIUM
     Indication: FAMILIAL RISK FACTOR
     Route: 048
  2. METFORMIN [Concomitant]
     Active Substance: METFORMIN HYDROCHLORIDE
     Route: 065
     Dates: end: 2015
  3. CRESTOR [Suspect]
     Active Substance: ROSUVASTATIN CALCIUM
     Indication: LOW DENSITY LIPOPROTEIN INCREASED
     Route: 048

REACTIONS (4)
  - Type 2 diabetes mellitus [Unknown]
  - Myalgia [Unknown]
  - Product use issue [Unknown]
  - Off label use [Unknown]
